FAERS Safety Report 6879071-9 (Version None)
Quarter: 2010Q3

REPORT INFORMATION
  Report Type: 
  Country: None (occurrence: None)
  Receive Date: 20100728
  Receipt Date: 20100723
  Transmission Date: 20110219
  Serious: Yes (Death, Hospitalization)
  Sender: FDA-Public Use
  Company Number: PHHY2010IT36157

PATIENT
  Sex: Male

DRUGS (4)
  1. TEGRETOL [Suspect]
     Indication: BIPOLAR DISORDER
     Dosage: 400 MG, DAILY
     Route: 048
     Dates: start: 20100101, end: 20100208
  2. DELORAZEPAM [Suspect]
     Indication: BIPOLAR DISORDER
     Dosage: 52 DROPS DAILY
     Dates: start: 20100101, end: 20100208
  3. CARBOLITHIUM [Suspect]
     Indication: BIPOLAR DISORDER
     Dosage: 300 MG, UNK
     Route: 048
     Dates: start: 20100101, end: 20100208
  4. ZYPREXA [Suspect]
     Indication: BIPOLAR DISORDER
     Dosage: 10 MG, DAILY
     Route: 048
     Dates: start: 20100101, end: 20100208

REACTIONS (5)
  - ANTIPSYCHOTIC DRUG LEVEL INCREASED [None]
  - COMA [None]
  - GASTROENTERITIS [None]
  - HYPERPYREXIA [None]
  - INCREASED BRONCHIAL SECRETION [None]
